FAERS Safety Report 11431444 (Version 2)
Quarter: 2015Q3

REPORT INFORMATION
  Report Type: Report from Study
  Country: US (occurrence: US)
  Receive Date: 20150828
  Receipt Date: 20150930
  Transmission Date: 20151125
  Serious: Yes (Other)
  Sender: FDA-Public Use
  Company Number: US-TAKEDA-2015MPI005599

PATIENT
  Age: 17 Year
  Sex: Male
  Weight: 51.1 kg

DRUGS (1)
  1. VELCADE [Suspect]
     Active Substance: BORTEZOMIB
     Indication: ACUTE MYELOID LEUKAEMIA
     Dosage: 1.3 MG/M2, UNK
     Route: 042
     Dates: start: 20150601, end: 20150806

REACTIONS (1)
  - Oesophageal infection [Not Recovered/Not Resolved]

NARRATIVE: CASE EVENT DATE: 20150816
